FAERS Safety Report 9374979 (Version 1)
Quarter: 2013Q2

REPORT INFORMATION
  Report Type: Spontaneous
  Country: FR (occurrence: FR)
  Receive Date: 20130628
  Receipt Date: 20130628
  Transmission Date: 20140414
  Serious: Yes (Hospitalization)
  Sender: FDA-Public Use
  Company Number: PHHY2013FR066756

PATIENT
  Age: 80 Year
  Sex: Female

DRUGS (3)
  1. EXFORGE [Suspect]
     Dosage: 1 DF, (VALS 160 MG/ AMLO 10 MG) QD
     Route: 048
     Dates: end: 20090828
  2. VASTAREL [Concomitant]
     Dosage: 35 MG, UNK
  3. ZOPICLONE [Concomitant]
     Dosage: UNK UKN, UNK

REACTIONS (2)
  - Hyponatraemia [Recovered/Resolved]
  - Hypokalaemia [Unknown]
